FAERS Safety Report 8882677 (Version 2)
Quarter: 2012Q4

REPORT INFORMATION
  Report Type: 
  Country: AU (occurrence: AU)
  Receive Date: 20121102
  Receipt Date: 20121204
  Transmission Date: 20130627
  Serious: Yes (Life-Threatening, Hospitalization, Other)
  Sender: FDA-Public Use
  Company Number: PHHY2012AU099100

PATIENT
  Age: 81 Year
  Sex: Female
  Weight: 89 kg

DRUGS (7)
  1. ACLASTA [Suspect]
     Dosage: 5 mg/100mL
     Route: 042
     Dates: start: 20101008
  2. ACLASTA [Suspect]
     Dosage: 5 mg/100mL
     Route: 042
     Dates: start: 20111027
  3. NEXIUM 1-2-3 [Concomitant]
     Indication: GASTROOESOPHAGEAL REFLUX DISEASE
     Route: 048
  4. OROXINE [Concomitant]
     Indication: HYPOTHYROIDISM
     Route: 048
  5. PROVERA [Concomitant]
     Route: 048
  6. PHYSIOTENS [Concomitant]
     Indication: HYPERTENSION
     Route: 048
  7. SERETIDE [Concomitant]
     Indication: CHRONIC OBSTRUCTIVE PULMONARY DISEASE

REACTIONS (2)
  - Gastrointestinal neoplasm [Recovered/Resolved]
  - Intestinal adenocarcinoma [Recovered/Resolved]
